FAERS Safety Report 8960498 (Version 1)
Quarter: 2012Q4

REPORT INFORMATION
  Report Type: Spontaneous
  Country: US (occurrence: None)
  Receive Date: 20121211
  Receipt Date: 20121211
  Transmission Date: 20130627
  Serious: Yes (Hospitalization)
  Sender: FDA-Public Use
  Company Number: None

PATIENT

DRUGS (10)
  1. VINCRISTINE [Suspect]
     Indication: ACUTE LYMPHOCYTIC LEUKEMIA
     Dosage: 1.5 mg/m2/dose  qweek  IV
     Route: 042
     Dates: start: 20120727, end: 20120907
  2. BACTRIM [Concomitant]
  3. ZANTAC [Concomitant]
  4. PREDNISONE [Concomitant]
  5. ALLOPURINOL [Concomitant]
  6. SODIUM BICARBONATE [Concomitant]
  7. ZOFRAN [Concomitant]
  8. ATIVAN [Concomitant]
  9. BENADRYL [Concomitant]
  10. TYLENOL [Concomitant]

REACTIONS (1)
  - Inappropriate antidiuretic hormone secretion [None]
